FAERS Safety Report 4448804-3 (Version None)
Quarter: 2004Q3

REPORT INFORMATION
  Report Type: 
  Country: None (occurrence: None)
  Receive Date: 20040909
  Receipt Date: 20040825
  Transmission Date: 20050211
  Serious: Yes (Hospitalization)
  Sender: FDA-Public Use
  Company Number: 2004AP04162

PATIENT
  Age: 24 Year
  Sex: Female

DRUGS (5)
  1. SEROQUEL [Suspect]
     Dosage: 25 MG TID PO
     Route: 048
     Dates: start: 20040729, end: 20040802
  2. PAXIL [Suspect]
     Dosage: 40 MG DAILY PO
     Route: 048
     Dates: start: 20010917, end: 20040802
  3. TOLEDOMIN [Suspect]
     Dosage: 25 MG DAILY PO
     Route: 048
     Dates: start: 20040715, end: 20040802
  4. ANAFRANIL [Suspect]
     Dosage: 50 MG DAILY
     Dates: end: 20040802
  5. LEXOTAN [Concomitant]

REACTIONS (3)
  - CONVULSION [None]
  - HYPOKALAEMIA [None]
  - SEROTONIN SYNDROME [None]
